FAERS Safety Report 18420996 (Version 15)
Quarter: 2022Q2

REPORT INFORMATION
  Report Type: Report from Study
  Country: CO (occurrence: CO)
  Receive Date: 20201023
  Receipt Date: 20220520
  Transmission Date: 20220720
  Serious: Yes (Life-Threatening, Hospitalization, Other)
  Sender: FDA-Public Use
  Company Number: NVSC2020CO281944

PATIENT
  Age: 39 Year
  Sex: Female
  Weight: 81 kg

DRUGS (14)
  1. ELTROMBOPAG OLAMINE [Suspect]
     Active Substance: ELTROMBOPAG OLAMINE
     Indication: Aplastic anaemia
     Dosage: 150 MG, QD  (6 TABLETS OF 25 MG OR 3 TABS OF 50 MG)
     Route: 048
     Dates: start: 20200818, end: 20201003
  2. ELTROMBOPAG OLAMINE [Suspect]
     Active Substance: ELTROMBOPAG OLAMINE
     Dosage: 150 MG, QD
     Route: 048
     Dates: start: 20201020
  3. ELTROMBOPAG OLAMINE [Suspect]
     Active Substance: ELTROMBOPAG OLAMINE
     Dosage: 150 MG, QD
     Route: 048
     Dates: start: 202008, end: 202111
  4. CYCLOSPORINE [Suspect]
     Active Substance: CYCLOSPORINE
     Indication: Aplastic anaemia
     Dosage: 100 MG, Q12H
     Route: 048
     Dates: start: 202008
  5. CYCLOSPORINE [Suspect]
     Active Substance: CYCLOSPORINE
     Dosage: 300 MG, QD
     Route: 048
     Dates: start: 202008
  6. CYCLOSPORINE [Suspect]
     Active Substance: CYCLOSPORINE
     Dosage: 200 MG, QD
     Route: 048
  7. CYCLOSPORINE [Suspect]
     Active Substance: CYCLOSPORINE
     Dosage: 100 MG, QD
     Route: 048
     Dates: start: 2020
  8. ACYCLOVIR [Concomitant]
     Active Substance: ACYCLOVIR
     Indication: Infection prophylaxis
     Dosage: 200 MG, Q12H
     Route: 048
     Dates: start: 202008
  9. ACYCLOVIR [Concomitant]
     Active Substance: ACYCLOVIR
     Indication: Aplastic anaemia
     Dosage: 100 MG, Q12H
     Route: 048
     Dates: start: 202008
  10. ACYCLOVIR [Concomitant]
     Active Substance: ACYCLOVIR
     Dosage: 400 MG, QD
     Route: 065
     Dates: start: 2020
  11. FLUCONAZOLE [Concomitant]
     Active Substance: FLUCONAZOLE
     Indication: Product used for unknown indication
     Dosage: UNK
     Route: 048
     Dates: end: 202009
  12. ACIFOLICO [Concomitant]
     Indication: Product used for unknown indication
     Dosage: UNK
     Route: 048
  13. ERYTHROPOIETIN [Concomitant]
     Active Substance: ERYTHROPOIETIN
     Indication: Product used for unknown indication
     Dosage: UNK (EVERY 3 DAYS)
     Route: 058
     Dates: end: 202009
  14. FOLIC ACID [Concomitant]
     Active Substance: FOLIC ACID
     Indication: Product used for unknown indication
     Dosage: UNK
     Route: 065
     Dates: end: 202009

REACTIONS (23)
  - Platelet count decreased [Unknown]
  - Cholesteatoma [Unknown]
  - Feeling abnormal [Unknown]
  - Anxiety [Unknown]
  - Decreased immune responsiveness [Unknown]
  - Stress [Unknown]
  - Product supply issue [Unknown]
  - Tremor [Unknown]
  - Tachycardia [Unknown]
  - Fear [Unknown]
  - Pain in extremity [Unknown]
  - Blood pressure increased [Unknown]
  - Discouragement [Unknown]
  - Back pain [Unknown]
  - Chest pain [Unknown]
  - Blood bilirubin decreased [Unknown]
  - Drug level increased [Unknown]
  - Panic attack [Recovered/Resolved]
  - Headache [Unknown]
  - Platelet count increased [Unknown]
  - Inappropriate schedule of product administration [Unknown]
  - Product use in unapproved indication [Unknown]
  - Somnolence [Unknown]

NARRATIVE: CASE EVENT DATE: 20210301
